FAERS Safety Report 24625034 (Version 6)
Quarter: 2025Q1

REPORT INFORMATION
  Report Type: Report from Study
  Country: FI (occurrence: FI)
  Receive Date: 20241115
  Receipt Date: 20250225
  Transmission Date: 20250408
  Serious: Yes (Hospitalization, Other)
  Sender: ABBVIE
  Company Number: FI-ABBVIE-6004753

PATIENT
  Age: 64 Year
  Sex: Male
  Weight: 100 kg

DRUGS (6)
  1. FOSCARBIDOPA\FOSLEVODOPA [Suspect]
     Active Substance: FOSCARBIDOPA\FOSLEVODOPA
     Indication: Parkinson^s disease
     Route: 058
     Dates: start: 20240924
  2. FOSCARBIDOPA\FOSLEVODOPA [Suspect]
     Active Substance: FOSCARBIDOPA\FOSLEVODOPA
     Route: 058
  3. GABAPENTIN [Concomitant]
     Active Substance: GABAPENTIN
     Indication: Pain
  4. BUPRENORPHINE [Concomitant]
     Active Substance: BUPRENORPHINE
     Indication: Pain
     Dosage: 1 [TRANSDERMAL] PATCH A WEEK
  5. Panadol forte [Concomitant]
     Indication: Pain
  6. SACCHAROMYCES CEREVISIAE [Concomitant]
     Active Substance: SACCHAROMYCES CEREVISIAE
     Indication: Gastrointestinal disorder prophylaxis
     Dates: start: 20241030

REACTIONS (21)
  - Atrial fibrillation [Not Recovered/Not Resolved]
  - Abdominal injury [Unknown]
  - Heart rate irregular [Unknown]
  - Catheter site erythema [Not Recovered/Not Resolved]
  - Atrial fibrillation [Not Recovered/Not Resolved]
  - Device leakage [Unknown]
  - Tremor [Unknown]
  - Device difficult to use [Unknown]
  - Malabsorption from administration site [Unknown]
  - Infusion site induration [Not Recovered/Not Resolved]
  - Catheter site induration [Unknown]
  - Syringe issue [Unknown]
  - Infusion site pain [Unknown]
  - Device placement issue [Unknown]
  - Catheter site swelling [Unknown]
  - Erythema [Not Recovered/Not Resolved]
  - Infusion site vesicles [Unknown]
  - Infusion site erythema [Not Recovered/Not Resolved]
  - Device connection issue [Unknown]
  - Gait disturbance [Not Recovered/Not Resolved]
  - Catheter site mass [Unknown]

NARRATIVE: CASE EVENT DATE: 20240101
